FAERS Safety Report 23444357 (Version 3)
Quarter: 2024Q1

REPORT INFORMATION
  Report Type: Report from Study
  Country: US (occurrence: US)
  Receive Date: 20240125
  Receipt Date: 20240131
  Transmission Date: 20240410
  Serious: Yes (Other)
  Sender: FDA-Public Use
  Company Number: US-002147023-NVSC2024US017334

PATIENT
  Age: 63 Year
  Sex: Female

DRUGS (1)
  1. COSENTYX [Suspect]
     Active Substance: SECUKINUMAB
     Indication: Psoriasis
     Dosage: UNK (BEGAN LOADING DOSES)
     Route: 065
     Dates: start: 20240101

REACTIONS (2)
  - Pruritus [Unknown]
  - Skin mass [Unknown]

NARRATIVE: CASE EVENT DATE: 20240117
